FAERS Safety Report 4777700-7 (Version None)
Quarter: 2005Q3

REPORT INFORMATION
  Report Type: 
  Country: None (occurrence: None)
  Receive Date: 20050923
  Receipt Date: 20050617
  Transmission Date: 20060218
  Serious: Yes (Hospitalization)
  Sender: FDA-Public Use
  Company Number: US-MERCK-0506USA02973

PATIENT
  Age: 55 Year
  Sex: Female
  Weight: 69 kg

DRUGS (8)
  1. VIOXX [Suspect]
     Indication: SHOULDER PAIN
     Route: 048
     Dates: start: 20011001, end: 20030501
  2. VIOXX [Suspect]
     Indication: ARTHRITIS
     Route: 048
     Dates: start: 20011001, end: 20030501
  3. ZOLOFT [Concomitant]
     Route: 065
  4. TRAZODONE HYDROCHLORIDE [Concomitant]
     Route: 065
  5. ALLEGRA [Concomitant]
     Route: 065
  6. IBUPROFEN [Concomitant]
     Indication: PAIN
     Route: 065
     Dates: start: 20041001
  7. XANAX [Concomitant]
     Indication: PANIC DISORDER
     Route: 065
  8. ENALAPRIL MALEATE [Concomitant]
     Indication: DIABETES MELLITUS
     Route: 065

REACTIONS (17)
  - ANGINA PECTORIS [None]
  - ATHEROSCLEROSIS [None]
  - BLOOD CHOLESTEROL INCREASED [None]
  - CHRONIC OBSTRUCTIVE PULMONARY DISEASE [None]
  - CORONARY ARTERY DISEASE [None]
  - DYSPEPSIA [None]
  - EAR PAIN [None]
  - HYPERTENSION [None]
  - LEUKOPENIA [None]
  - MYOCARDIAL INFARCTION [None]
  - OEDEMA [None]
  - PLANTAR FASCIITIS [None]
  - PNEUMONIA [None]
  - ROTATOR CUFF SYNDROME [None]
  - THROMBOCYTOPENIA [None]
  - TRICUSPID VALVE INCOMPETENCE [None]
  - VAGINITIS BACTERIAL [None]
